FAERS Safety Report 4401631-5 (Version None)
Quarter: 2004Q3

REPORT INFORMATION
  Report Type: 
  Country: None (occurrence: None)
  Receive Date: 20040719
  Receipt Date: 20040415
  Transmission Date: 20050211
  Serious: Yes (Other)
  Sender: FDA-Public Use
  Company Number: JP-ROCHE-364529

PATIENT
  Age: 60 Year
  Sex: Female

DRUGS (11)
  1. XELODA [Suspect]
     Indication: BREAST CANCER
     Route: 048
     Dates: start: 20031115, end: 20040511
  2. MEDROXYPROGESTERONE ACETATE [Concomitant]
     Route: 048
  3. AROMASIN [Concomitant]
     Route: 048
  4. OXYCONTIN [Concomitant]
     Route: 048
  5. MORPHINE SULFATE [Concomitant]
     Route: 048
  6. LOXONIN [Concomitant]
     Route: 048
  7. LANDSEN [Concomitant]
  8. DEPAS [Concomitant]
     Route: 048
  9. HALOPERIDOL [Concomitant]
  10. HALCION [Concomitant]
     Route: 048
  11. TRYPTANOL [Concomitant]

REACTIONS (1)
  - HYPERAMMONAEMIA [None]
